FAERS Safety Report 7040974-6 (Version None)
Quarter: 2010Q4

REPORT INFORMATION
  Report Type: 
  Country: None (occurrence: None)
  Receive Date: 20101013
  Receipt Date: 20101006
  Transmission Date: 20110411
  Serious: Yes (Death, Hospitalization)
  Sender: FDA-Public Use
  Company Number: JP-ASTRAZENECA-2010SE11010

PATIENT
  Age: 82 Year
  Sex: Male

DRUGS (8)
  1. CANDESARTAN CILEXETIL AND HYDROCHLOROTHIAZIDE [Suspect]
     Indication: HYPERTENSION
     Route: 048
     Dates: start: 20090910, end: 20100101
  2. STOGAR [Concomitant]
     Route: 048
  3. TAMSULOSIN HCL [Concomitant]
     Route: 048
  4. DEPROMEL [Concomitant]
     Route: 048
  5. ALOSENN [Concomitant]
     Route: 048
  6. GLYBURIDE [Concomitant]
     Route: 048
  7. HALCION [Concomitant]
     Route: 048
  8. FLUOTHANE [Concomitant]
     Route: 055

REACTIONS (3)
  - AORTIC DISSECTION [None]
  - CEREBROVASCULAR ACCIDENT [None]
  - RENAL FAILURE ACUTE [None]
